FAERS Safety Report 9642405 (Version 3)
Quarter: 2014Q1

REPORT INFORMATION
  Report Type: Spontaneous
  Country: BE (occurrence: BE)
  Receive Date: 20131024
  Receipt Date: 20140328
  Transmission Date: 20141002
  Serious: Yes (Hospitalization, Other)
  Sender: FDA-Public Use
  Company Number: BE-AMGEN-BELSP2013074380

PATIENT
  Age: 65 Year
  Sex: Female
  Weight: 53 kg

DRUGS (10)
  1. PROLIA [Suspect]
     Indication: OSTEOPOROSIS
     Dosage: 60 MG, Q6MO
     Route: 058
     Dates: start: 201209
  2. PANTOPRAZOLE [Concomitant]
     Indication: GASTRITIS EROSIVE
     Dosage: 40 MG, 1/J
     Route: 048
     Dates: start: 20120928
  3. MOBIC [Concomitant]
     Indication: INTERVERTEBRAL DISC DISORDER
     Dosage: 15 MG, 1/J
     Route: 030
     Dates: start: 20130509, end: 20130514
  4. PARACETAMOL [Concomitant]
     Indication: INTERVERTEBRAL DISC DISORDER
     Dosage: 1 G, 3/J
     Route: 048
     Dates: start: 20130509
  5. COLECALCIFEROL [Concomitant]
     Indication: OSTEOPOROSIS
     Dosage: 25 IU, 1/IN
     Route: 048
  6. CALCIUM CARBONATE [Concomitant]
     Indication: OSTEOPOROSIS
     Dosage: 1.25 G, 1/J
     Route: 048
  7. PANTOMED                           /00178901/ [Concomitant]
  8. DAFLON                             /00426001/ [Concomitant]
  9. DAFALGAN [Concomitant]
  10. STEOVIT D3 [Concomitant]

REACTIONS (13)
  - Polyneuropathy [Recovering/Resolving]
  - Abasia [Recovering/Resolving]
  - Muscular weakness [Unknown]
  - Paralysis [Recovering/Resolving]
  - Demyelinating polyneuropathy [Unknown]
  - Intervertebral disc disorder [Unknown]
  - Hyporeflexia [Unknown]
  - Enteritis [Unknown]
  - Diarrhoea [Unknown]
  - Back pain [Unknown]
  - Sciatica [Unknown]
  - Sensation of heaviness [Unknown]
  - Weight bearing difficulty [Unknown]
